FAERS Safety Report 4357646-9 (Version None)
Quarter: 2004Q2

REPORT INFORMATION
  Report Type: 
  Country: None (occurrence: None)
  Receive Date: 20040513
  Receipt Date: 20040507
  Transmission Date: 20050107
  Serious: Yes (Life-Threatening, Hospitalization, Other)
  Sender: FDA-Public Use
  Company Number: US-MERCK-0405USA00388

PATIENT
  Age: 75 Year
  Sex: Male

DRUGS (7)
  1. ASPIRIN [Concomitant]
     Route: 065
  2. COREG [Concomitant]
     Route: 065
  3. IRON (UNSPECIFIED) [Concomitant]
     Route: 065
  4. PRINIVIL [Concomitant]
     Route: 048
  5. ZOCOR [Suspect]
     Route: 048
     Dates: start: 20010501, end: 20040401
  6. ZOCOR [Suspect]
     Route: 048
     Dates: start: 20040401, end: 20040501
  7. ALDACTONE [Concomitant]
     Route: 065

REACTIONS (6)
  - ANGIOPLASTY [None]
  - ARTERIAL DISORDER [None]
  - BLOOD CREATINE PHOSPHOKINASE INCREASED [None]
  - HEPATIC FAILURE [None]
  - RENAL FAILURE ACUTE [None]
  - RHABDOMYOLYSIS [None]
